FAERS Safety Report 5670392-4 (Version None)
Quarter: 2008Q1

REPORT INFORMATION
  Report Type: 
  Country: None (occurrence: None)
  Receive Date: 20080318
  Receipt Date: 20080310
  Transmission Date: 20080703
  Serious: Yes (Hospitalization)
  Sender: FDA-Public Use
  Company Number: US-ALLERGAN-0802916US

PATIENT
  Sex: Female

DRUGS (1)
  1. BOTOX PURIFIED NEUROTOXIN COMPLEX [Suspect]
     Indication: TORTICOLLIS
     Dosage: 200 UNITS, UNK
     Route: 030

REACTIONS (1)
  - PNEUMONIA ASPIRATION [None]
